FAERS Safety Report 4384373-4 (Version None)
Quarter: 2004Q2

REPORT INFORMATION
  Report Type: 
  Country: None (occurrence: None)
  Receive Date: 20040624
  Receipt Date: 20040109
  Transmission Date: 20050107
  Serious: Yes (Congenital Anomaly, Other)
  Sender: FDA-Public Use
  Company Number: US-BRISTOL-MYERS SQUIBB COMPANY-12474623

PATIENT
  Sex: Male

DRUGS (2)
  1. REYATAZ [Suspect]
     Route: 064
     Dates: start: 20030724, end: 20040204
  2. COMBIVIR [Concomitant]
     Route: 064
     Dates: start: 20030401, end: 20040204

REACTIONS (13)
  - ABORTION INDUCED [None]
  - CEREBRAL VENTRICLE DILATATION [None]
  - CONGENITAL ATRIAL SEPTAL DEFECT [None]
  - DILATATION ATRIAL [None]
  - DRUG EXPOSURE DURING PREGNANCY [None]
  - FOETAL CARDIAC DISORDER [None]
  - FOETAL GROWTH RETARDATION [None]
  - FOETAL MALFORMATION [None]
  - GASTROINTESTINAL OEDEMA [None]
  - OLIGOHYDRAMNIOS [None]
  - PREGNANCY [None]
  - RENAL DISORDER [None]
  - VENTRICULAR HYPERTROPHY [None]
